FAERS Safety Report 7648427-9 (Version None)
Quarter: 2011Q3

REPORT INFORMATION
  Report Type: 
  Country: None (occurrence: None)
  Receive Date: 20110801
  Receipt Date: 20110721
  Transmission Date: 20111222
  Serious: Yes (Hospitalization, Other)
  Sender: FDA-Public Use
  Company Number: US-ASTRAZENECA-2010SE49903

PATIENT
  Age: 72 Year
  Sex: Male

DRUGS (2)
  1. CRESTOR [Suspect]
     Route: 048
  2. NEXIUM [Suspect]
     Route: 048

REACTIONS (6)
  - CARDIAC DISORDER [None]
  - DYSPEPSIA [None]
  - ARRHYTHMIA [None]
  - DRUG DOSE OMISSION [None]
  - MYOCARDIAL INFARCTION [None]
  - MALAISE [None]
